FAERS Safety Report 10102010 (Version 2)
Quarter: 2014Q2

REPORT INFORMATION
  Report Type: Spontaneous
  Country: DE (occurrence: DE)
  Receive Date: 20140424
  Receipt Date: 20140424
  Transmission Date: 20141212
  Serious: Yes (Other)
  Sender: FDA-Public Use
  Company Number: GXKR2014DE001167

PATIENT
  Age: 66 Year
  Sex: Female
  Weight: 83 kg

DRUGS (1)
  1. ESTRAMON CONTI [Suspect]
     Indication: PROPHYLAXIS
     Dosage: UNK
     Route: 062
     Dates: start: 201308

REACTIONS (1)
  - Postmenopausal haemorrhage [Recovered/Resolved]
